FAERS Safety Report 16399366 (Version 1)
Quarter: 2019Q2

REPORT INFORMATION
  Report Type: Spontaneous
  Country: US (occurrence: US)
  Receive Date: 20190501
  Receipt Date: 20190501
  Transmission Date: 20190711
  Serious: Yes (Life-Threatening, Hospitalization, Disabling, Other)
  Sender: FDA-Public Use
  Company Number: None

PATIENT
  Age: 59 Year
  Sex: Female
  Weight: 96.62 kg

DRUGS (10)
  1. IBUPROFEN 600MG [Suspect]
     Active Substance: IBUPROFEN
  2. ALIVE VITAMINS [Concomitant]
  3. NAPROXEN. [Suspect]
     Active Substance: NAPROXEN
     Indication: INTERVERTEBRAL DISC DISORDER
     Dosage: ?          QUANTITY:500 MG MILLIGRAM(S);OTHER FREQUENCY:EVY 8 HRS/2-DAY;?
     Route: 048
     Dates: start: 20190221, end: 20190329
  4. NAPROXEN. [Suspect]
     Active Substance: NAPROXEN
     Indication: SPINAL COLUMN INJURY
     Dosage: ?          QUANTITY:500 MG MILLIGRAM(S);OTHER FREQUENCY:EVY 8 HRS/2-DAY;?
     Route: 048
     Dates: start: 20190221, end: 20190329
  5. NAPROXEN. [Suspect]
     Active Substance: NAPROXEN
     Indication: MUSCLE STRAIN
     Dosage: ?          QUANTITY:500 MG MILLIGRAM(S);OTHER FREQUENCY:EVY 8 HRS/2-DAY;?
     Route: 048
     Dates: start: 20190221, end: 20190329
  6. AMLODIPINE BESYLATE. [Concomitant]
     Active Substance: AMLODIPINE BESYLATE
  7. PRAVASTATIN. [Concomitant]
     Active Substance: PRAVASTATIN
  8. NAPROXEN. [Suspect]
     Active Substance: NAPROXEN
     Indication: NEURALGIA
     Dosage: ?          QUANTITY:500 MG MILLIGRAM(S);OTHER FREQUENCY:EVY 8 HRS/2-DAY;?
     Route: 048
     Dates: start: 20190221, end: 20190329
  9. CYCLOBENZAPRINE 10MG [Suspect]
     Active Substance: CYCLOBENZAPRINE
  10. TRAMADOL HYDROCHLORIDE. [Suspect]
     Active Substance: TRAMADOL HYDROCHLORIDE

REACTIONS (4)
  - Blood potassium decreased [None]
  - Limb discomfort [None]
  - Musculoskeletal discomfort [None]
  - Hypoaesthesia [None]

NARRATIVE: CASE EVENT DATE: 20190329
